FAERS Safety Report 8696826 (Version 2)
Quarter: 2014Q1

REPORT INFORMATION
  Report Type: Spontaneous
  Country: FR (occurrence: FR)
  Receive Date: 20120801
  Receipt Date: 20140312
  Transmission Date: 20141002
  Serious: Yes (Hospitalization, Other)
  Sender: FDA-Public Use
  Company Number: FR-ALLERGAN-1210210US

PATIENT
  Age: 2 Year
  Sex: Male
  Weight: 25.2 kg

DRUGS (6)
  1. BOTOX [Suspect]
     Indication: MUSCLE SPASTICITY
     Dosage: 300 UNITS, UNK
     Dates: start: 20120509, end: 20120509
  2. BOTOX [Suspect]
     Dosage: UNK
     Dates: start: 20111122, end: 20111122
  3. BOTOX [Suspect]
     Dosage: UNK
     Dates: start: 20110607, end: 20110607
  4. BOTOX [Suspect]
     Dosage: UNK
     Dates: start: 20101122, end: 20101122
  5. MICROPAKINE [Concomitant]
     Indication: PRODUCT USED FOR UNKNOWN INDICATION
     Dosage: 250 MG, QAM
     Dates: start: 201112
  6. MICROPAKINE [Concomitant]
     Dosage: 300 MG, QPM
     Dates: start: 201112

REACTIONS (3)
  - Status epilepticus [Recovered/Resolved]
  - Convulsion [Recovered/Resolved]
  - Pyrexia [Recovered/Resolved]
